FAERS Safety Report 12629499 (Version 1)
Quarter: 2016Q3

REPORT INFORMATION
  Report Type: Spontaneous
  Country: US (occurrence: US)
  Receive Date: 20160808
  Receipt Date: 20160808
  Transmission Date: 20161109
  Serious: Yes (Other)
  Sender: FDA-Public Use
  Company Number: US-NOVOPROD-504392

PATIENT
  Age: 77 Year
  Sex: Male

DRUGS (1)
  1. LEVEMIR [Suspect]
     Active Substance: INSULIN DETEMIR
     Indication: PRODUCT USED FOR UNKNOWN INDICATION
     Dosage: UNKNOWN
     Route: 058

REACTIONS (10)
  - Diabetes mellitus inadequate control [Unknown]
  - Stress [Unknown]
  - Blood pressure abnormal [Unknown]
  - Aspiration [Unknown]
  - Haemorrhage [Unknown]
  - Fall [Unknown]
  - Cardiac arrest [Unknown]
  - Eating disorder [Unknown]
  - Loss of consciousness [Unknown]
  - Pneumonia [Unknown]
